FAERS Safety Report 7380495-4 (Version None)
Quarter: 2011Q1

REPORT INFORMATION
  Report Type: 
  Country: None (occurrence: None)
  Receive Date: 20110329
  Receipt Date: 20110324
  Transmission Date: 20110831
  Serious: Yes (Death, Other)
  Sender: FDA-Public Use
  Company Number: US-AMGEN-USASP2011014141

PATIENT
  Age: 81 Year
  Sex: Male

DRUGS (2)
  1. NPLATE [Suspect]
     Indication: IDIOPATHIC THROMBOCYTOPENIC PURPURA
     Dosage: 68 A?G/KG, UNK
     Dates: start: 20091209, end: 20100203
  2. PREDNISONE [Concomitant]

REACTIONS (2)
  - DEATH [None]
  - THERAPEUTIC RESPONSE DECREASED [None]
